FAERS Safety Report 5968177-4 (Version None)
Quarter: 2008Q4

REPORT INFORMATION
  Report Type: 
  Country: None (occurrence: None)
  Receive Date: 20081122
  Receipt Date: 20081122
  Transmission Date: 20090506
  Serious: Yes (Hospitalization)
  Sender: FDA-Public Use
  Company Number: None

PATIENT
  Sex: Female
  Weight: 50.5 kg

DRUGS (2)
  1. CYCLOPHOSPHAMIDE [Suspect]
     Dosage: 850 MG
  2. DOXORUBICIN HYDROCHLORIDE [Suspect]
     Dosage: 85 MG

REACTIONS (7)
  - ANAEMIA [None]
  - ASTHENIA [None]
  - FATIGUE [None]
  - OROPHARYNGEAL PAIN [None]
  - PULMONARY EMBOLISM [None]
  - PYREXIA [None]
  - WHITE BLOOD CELL COUNT INCREASED [None]
